FAERS Safety Report 13338434 (Version 1)
Quarter: 2017Q1

REPORT INFORMATION
  Report Type: Spontaneous
  Country: IT (occurrence: IT)
  Receive Date: 20170315
  Receipt Date: 20170315
  Transmission Date: 20170428
  Serious: Yes (Hospitalization, Other)
  Sender: FDA-Public Use
  Company Number: IT-PFIZER INC-2017105707

PATIENT
  Age: 67 Year
  Sex: Male

DRUGS (2)
  1. TERAXANS [Suspect]
     Active Substance: INDAPAMIDE\PERINDOPRIL ARGININE
     Indication: HYPERTENSION
     Dosage: UNK
     Route: 048
     Dates: start: 20150101, end: 20150207
  2. CARDURA [Suspect]
     Active Substance: DOXAZOSIN MESYLATE
     Indication: HYPERTENSION
     Dosage: 2 MG, DAILY
     Route: 048
     Dates: start: 20150101, end: 20160208

REACTIONS (6)
  - Vertigo [Unknown]
  - Asthenia [Unknown]
  - Blood potassium decreased [Unknown]
  - Cold sweat [Unknown]
  - Bradycardia [Unknown]
  - Diplopia [Unknown]

NARRATIVE: CASE EVENT DATE: 20160207
